FAERS Safety Report 11197158 (Version 1)
Quarter: 2015Q2

REPORT INFORMATION
  Report Type: Report from Study
  Country: US (occurrence: US)
  Receive Date: 20150617
  Receipt Date: 20150617
  Transmission Date: 20150821
  Serious: Yes (Other)
  Sender: FDA-Public Use
  Company Number: US-BAYER-2015-324573

PATIENT
  Sex: Female

DRUGS (2)
  1. ASPIRIN. [Suspect]
     Active Substance: ASPIRIN
     Indication: KAWASAKI^S DISEASE
  2. ENOXAPARIN [Concomitant]
     Active Substance: ENOXAPARIN
     Indication: KAWASAKI^S DISEASE

REACTIONS (2)
  - Postpartum haemorrhage [None]
  - Maternal exposure during pregnancy [None]
